FAERS Safety Report 4553891-8 (Version None)
Quarter: 2005Q1

REPORT INFORMATION
  Report Type: 
  Country: None (occurrence: None)
  Receive Date: 20050118
  Receipt Date: 20041216
  Transmission Date: 20050727
  Serious: Yes (Hospitalization, Other)
  Sender: FDA-Public Use
  Company Number: US-MERCK-0412USA02114

PATIENT
  Age: 61 Year
  Sex: Male

DRUGS (2)
  1. CANCIDAS [Suspect]
     Indication: LUNG INFECTION
     Route: 042
  2. CANCIDAS [Suspect]
     Indication: ASPERGILLOSIS
     Route: 042

REACTIONS (3)
  - CATHETER RELATED COMPLICATION [None]
  - HAEMATOCRIT DECREASED [None]
  - HAEMOGLOBIN DECREASED [None]
